FAERS Safety Report 20856089 (Version 1)
Quarter: 2022Q2

REPORT INFORMATION
  Report Type: Spontaneous
  Country: BG (occurrence: BG)
  Receive Date: 20220520
  Receipt Date: 20220520
  Transmission Date: 20220720
  Serious: Yes (Other)
  Sender: FDA-Public Use
  Company Number: BG-009507513-2205BGR004483

PATIENT
  Age: 71 Year
  Sex: Male

DRUGS (1)
  1. PEMBROLIZUMAB [Suspect]
     Active Substance: PEMBROLIZUMAB
     Dosage: 100 MILLIGRAM, Q3W
     Route: 042
     Dates: start: 201802, end: 201802

REACTIONS (7)
  - Ileus [Unknown]
  - Acute abdomen [Unknown]
  - Malignant neoplasm progression [Unknown]
  - Immune-mediated lung disease [Unknown]
  - Interstitial lung disease [Unknown]
  - Asthenia [Unknown]
  - Product use issue [Unknown]

NARRATIVE: CASE EVENT DATE: 20180201
